FAERS Safety Report 5122504-9 (Version None)
Quarter: 2006Q4

REPORT INFORMATION
  Report Type: 
  Country: None (occurrence: None)
  Receive Date: 20061004
  Receipt Date: 20060920
  Transmission Date: 20070319
  Serious: Yes (Death)
  Sender: FDA-Public Use
  Company Number: S06-USA-03868-01

PATIENT
  Age: 20 Year
  Sex: Male

DRUGS (4)
  1. LEXAPRO [Suspect]
     Indication: DEPRESSION
     Dates: start: 20060801, end: 20060901
  2. ZOLOFT [Suspect]
  3. METHADONE HCL [Suspect]
  4. AMBIEN [Concomitant]

REACTIONS (7)
  - ABDOMINAL PAIN UPPER [None]
  - ACCIDENTAL DEATH [None]
  - ACCIDENTAL OVERDOSE [None]
  - ARRHYTHMIA [None]
  - DRUG INTERACTION [None]
  - HEART RATE INCREASED [None]
  - LOSS OF CONSCIOUSNESS [None]
